FAERS Safety Report 15806160 (Version 1)
Quarter: 2019Q1

REPORT INFORMATION
  Report Type: Spontaneous
  Country: US (occurrence: US)
  Receive Date: 20190110
  Receipt Date: 20190110
  Transmission Date: 20190417
  Serious: Yes (Death)
  Sender: FDA-Public Use
  Company Number: US-BAYER-2019-003318

PATIENT
  Age: 25 Year
  Sex: Female

DRUGS (11)
  1. SALICYLATES NOS [Suspect]
     Active Substance: UNSPECIFIED INGREDIENT
  2. TRAZODONE [Suspect]
     Active Substance: TRAZODONE HYDROCHLORIDE
  3. LITHIUM. [Suspect]
     Active Substance: LITHIUM
  4. SERTRALINE [Suspect]
     Active Substance: SERTRALINE HYDROCHLORIDE
  5. PARACETAMOL+CHLORPHENIRAMINE MALEATE+DEXTROMETHORPHAN+PSEUDOEPHEDRINE [Suspect]
     Active Substance: ACETAMINOPHEN\CHLORPHENIRAMINE MALEATE\DEXTROMETHORPHAN HYDROBROMIDE\PHENYLEPHRINE
  6. OXYCODONE [Suspect]
     Active Substance: OXYCODONE
  7. ONDANSETRON [Suspect]
     Active Substance: ONDANSETRON
  8. OLANZAPINE. [Suspect]
     Active Substance: OLANZAPINE
  9. IBUPROFEN. [Suspect]
     Active Substance: IBUPROFEN
  10. DEXTROAMPHET SACCHARAT, AMPHET ASPARTATE, DEXTROAMPHET SULFATE AND AMPHET SULFAT [Suspect]
     Active Substance: AMPHETAMINE ASPARTATE\AMPHETAMINE SULFATE\DEXTROAMPHETAMINE SACCHARATE\DEXTROAMPHETAMINE SULFATE
  11. ACETAMINOPHEN. [Suspect]
     Active Substance: ACETAMINOPHEN

REACTIONS (1)
  - Toxicity to various agents [Fatal]
